FAERS Safety Report 8270486-3 (Version None)
Quarter: 2012Q2

REPORT INFORMATION
  Report Type: 
  Country: None (occurrence: None)
  Receive Date: 20120410
  Receipt Date: 20120402
  Transmission Date: 20120825
  Serious: Yes (Hospitalization)
  Sender: FDA-Public Use
  Company Number: US-CELGENEUS-163-21880-12040390

PATIENT
  Sex: Female
  Weight: 102.15 kg

DRUGS (11)
  1. NEXIUM [Concomitant]
     Route: 048
     Dates: start: 20030101
  2. PRESCRIPTION SKIN LOTION [Concomitant]
     Route: 061
     Dates: start: 20110601
  3. CALCIUM CARBONATE [Concomitant]
     Route: 048
     Dates: start: 20110101
  4. OXYCODONE HCL [Concomitant]
     Route: 048
     Dates: start: 20110601
  5. REVLIMID [Suspect]
     Indication: MULTIPLE MYELOMA
     Dosage: 15 MILLIGRAM
     Route: 048
     Dates: start: 20081101, end: 20100101
  6. NORVASC [Concomitant]
     Route: 048
     Dates: start: 20030101
  7. REVLIMID [Suspect]
     Dosage: 10 MILLIGRAM
     Route: 048
     Dates: start: 20110624
  8. REVLIMID [Suspect]
     Dosage: 25 MILLIGRAM
     Route: 048
     Dates: start: 20111201
  9. PERIACTIN [Concomitant]
     Route: 048
     Dates: start: 20030101
  10. STOOL SOFTENER [Concomitant]
     Route: 048
     Dates: start: 20110601
  11. METOPROLOL TARTRATE [Concomitant]
     Route: 048
     Dates: start: 20030101

REACTIONS (2)
  - RENAL DISORDER [None]
  - ELECTROLYTE IMBALANCE [None]
